FAERS Safety Report 14140113 (Version 2)
Quarter: 2018Q2

REPORT INFORMATION
  Report Type: Spontaneous
  Country: FR (occurrence: FR)
  Receive Date: 20171030
  Receipt Date: 20180529
  Transmission Date: 20180711
  Serious: Yes (Other)
  Sender: FDA-Public Use
  Company Number: FR-MERCK KGAA-2032683

PATIENT
  Age: 63 Year
  Sex: Female

DRUGS (2)
  1. NOVOTHYROX [Suspect]
     Active Substance: LEVOTHYROXINE SODIUM
     Route: 048
     Dates: start: 20170908
  2. NOVOTHYROX [Suspect]
     Active Substance: LEVOTHYROXINE SODIUM
     Indication: HYPOTHYROIDISM
     Route: 048
     Dates: start: 20170518, end: 20170908

REACTIONS (22)
  - Gastrointestinal motility disorder [Unknown]
  - Serum ferritin increased [None]
  - Personal relationship issue [None]
  - Middle insomnia [Unknown]
  - Asthenia [Recovered/Resolved]
  - Irritability [None]
  - Nausea [Recovered/Resolved]
  - Temperature intolerance [None]
  - Blood thyroid stimulating hormone increased [Unknown]
  - Weight increased [Unknown]
  - Personality change [None]
  - Loss of personal independence in daily activities [None]
  - Headache [Recovered/Resolved]
  - Fatigue [Unknown]
  - Dizziness [Recovered/Resolved]
  - Somnolence [None]
  - Paraesthesia [Recovered/Resolved]
  - Insomnia [Unknown]
  - Depressed mood [Recovered/Resolved]
  - Blood urea increased [None]
  - Sleep disorder [Unknown]
  - Memory impairment [Unknown]

NARRATIVE: CASE EVENT DATE: 2017
